FAERS Safety Report 7556757-4 (Version None)
Quarter: 2011Q2

REPORT INFORMATION
  Report Type: 
  Country: None (occurrence: None)
  Receive Date: 20110620
  Receipt Date: 20110608
  Transmission Date: 20111010
  Serious: Yes (Other)
  Sender: FDA-Public Use
  Company Number: ES-CELGENEUS-144-21880-10062924

PATIENT
  Sex: Male

DRUGS (5)
  1. DEXAMETHASONE [Suspect]
     Route: 048
     Dates: start: 20080407
  2. REVLIMID [Suspect]
     Route: 048
     Dates: end: 20100615
  3. REVLIMID [Suspect]
     Indication: MULTIPLE MYELOMA
     Route: 048
     Dates: end: 20091118
  4. REVLIMID [Suspect]
     Route: 048
     Dates: start: 20080407
  5. DEXAMETHASONE [Suspect]
     Indication: MULTIPLE MYELOMA
     Route: 048
     Dates: end: 20091122

REACTIONS (1)
  - PROSTATE CANCER [None]
